FAERS Safety Report 7491706-9 (Version None)
Quarter: 2011Q2

REPORT INFORMATION
  Report Type: 
  Country: None (occurrence: None)
  Receive Date: 20110518
  Receipt Date: 20110518
  Transmission Date: 20111010
  Serious: Yes (Hospitalization)
  Sender: FDA-Public Use
  Company Number: None

PATIENT
  Age: 40 Year
  Sex: Female
  Weight: 64 kg

DRUGS (17)
  1. NORCO [Concomitant]
  2. ZOFRAN [Concomitant]
  3. FORTAZ [Concomitant]
  4. IXABEPILONE 32MG/M2 ONCE EVERY 21 DAYS [Suspect]
     Indication: BREAST CANCER METASTATIC
     Dosage: IV EVERY 21 DAYS
     Route: 042
     Dates: start: 20110425
  5. SEROQUEL [Concomitant]
  6. VALTREX [Concomitant]
  7. AMBIEN [Concomitant]
  8. VIT D3 [Concomitant]
  9. LAMICTAL [Concomitant]
  10. MOM [Concomitant]
  11. METHADONE HCL [Concomitant]
  12. ANCEF [Concomitant]
  13. VORINOSTAT 300MG DAILY DAYS 1-14 OF EACH CYCLE [Suspect]
     Indication: BREAST CANCER METASTATIC
     Dosage: PO DAYS 1-14 EACH CYCLE
     Route: 048
     Dates: start: 20110425, end: 20110505
  14. XANAX [Concomitant]
  15. M.V.I. [Concomitant]
  16. VIT C [Concomitant]
  17. ZOLINZA [Concomitant]

REACTIONS (2)
  - CATHETER SITE CELLULITIS [None]
  - MALAISE [None]
